FAERS Safety Report 13378296 (Version 1)
Quarter: 2017Q1

REPORT INFORMATION
  Report Type: Spontaneous
  Country: US (occurrence: US)
  Receive Date: 20170328
  Receipt Date: 20170328
  Transmission Date: 20170429
  Serious: Yes (Hospitalization)
  Sender: FDA-Public Use
  Company Number: US-MYLANLABS-2017M1019310

PATIENT

DRUGS (8)
  1. CISPLATIN. [Suspect]
     Active Substance: CISPLATIN
     Indication: VULVAR ADENOCARCINOMA
     Dosage: 40 MG/M2 WEEKLY, FOR 4 WEEKS
     Route: 065
  2. TRASTUZUMAB [Concomitant]
     Active Substance: TRASTUZUMAB
     Indication: VULVAR ADENOCARCINOMA
     Dosage: INITIALLY 4MG/KG WEEKLY; TOTAL 13 DOSES; MAINTAINED AT 2 MG/KG WEEKLY
     Route: 065
  3. DOCETAXEL. [Concomitant]
     Active Substance: DOCETAXEL
     Indication: VULVAR ADENOCARCINOMA
     Dosage: 75 MG/M2
     Route: 065
  4. METHOTREXATE. [Suspect]
     Active Substance: METHOTREXATE
     Indication: VULVAR ADENOCARCINOMA
     Dosage: 40 MG/M2
     Route: 065
  5. CYCLOPHOSPHAMIDE. [Suspect]
     Active Substance: CYCLOPHOSPHAMIDE
     Indication: VULVAR ADENOCARCINOMA
     Dosage: 600 MG/M2
     Route: 065
  6. FLUOROURACIL. [Suspect]
     Active Substance: FLUOROURACIL
     Indication: VULVAR ADENOCARCINOMA
     Dosage: 600 MG/M2
     Route: 065
  7. CARBOPLATIN. [Concomitant]
     Active Substance: CARBOPLATIN
     Indication: VULVAR ADENOCARCINOMA
     Dosage: 6 AREA UNDER THE CURVE
     Route: 065
  8. TRASTUZUMAB [Concomitant]
     Active Substance: TRASTUZUMAB
     Dosage: MAINTAINED AT 2 MG/KG WEEKLY
     Route: 065

REACTIONS (3)
  - Asthenia [Unknown]
  - Fatigue [Recovered/Resolved]
  - Diarrhoea [Recovered/Resolved]
